FAERS Safety Report 8478159-9 (Version None)
Quarter: 2012Q2

REPORT INFORMATION
  Report Type: 
  Country: None (occurrence: None)
  Receive Date: 20120629
  Receipt Date: 20120625
  Transmission Date: 20120825
  Serious: Yes (Hospitalization)
  Sender: FDA-Public Use
  Company Number: PHHY2012JP055319

PATIENT
  Age: 79 Year
  Sex: Male

DRUGS (2)
  1. LYRICA [Concomitant]
     Dosage: 150 MG, UNK
     Route: 048
  2. CARBAMAZEPINE [Suspect]
     Indication: HERPES ZOSTER
     Dosage: 200 MG, DAILY
     Route: 048

REACTIONS (1)
  - INTERSTITIAL LUNG DISEASE [None]
